FAERS Safety Report 4722748-1 (Version None)
Quarter: 2005Q3

REPORT INFORMATION
  Report Type: 
  Country: None (occurrence: None)
  Receive Date: 20050720
  Receipt Date: 20050713
  Transmission Date: 20060218
  Serious: Yes (Hospitalization)
  Sender: FDA-Public Use
  Company Number: TPA2005A00725

PATIENT
  Age: 69 Year
  Sex: Male

DRUGS (8)
  1. PIOGLITAZONE HCL [Suspect]
     Indication: GLUCOSE TOLERANCE IMPAIRED
     Dosage: QAM, PER ORAL
     Route: 048
     Dates: start: 20040813
  2. NEURONTIN (GABAPENTIN ) (100 MILLIGRAM) [Concomitant]
  3. METOPROLOL TARTRATE (METOPROLOL ) (100 MILLIGRAM) [Concomitant]
  4. DOCUSATE (DOCUSATE) (250 MILLIGRAM) [Concomitant]
  5. OMEPRAZOLE (OMEPRAZOLE) (20 MILLGIRAM) [Concomitant]
  6. LOVASTATIN (LOVASTATIN) (40 MILLIGRAM) [Concomitant]
  7. DOXAZOSIN (DOXAZOSIN) (1 MILLIGRAM) [Suspect]
  8. ASPIRIN (ACETYLSALICYLIC ACID) (81 MILLIGRAM) [Concomitant]

REACTIONS (10)
  - ASTHENIA [None]
  - CEREBROVASCULAR ACCIDENT [None]
  - CHEST PAIN [None]
  - HEADACHE [None]
  - HYPERREFLEXIA [None]
  - HYPOAESTHESIA [None]
  - NECK PAIN [None]
  - PARAESTHESIA [None]
  - SENSORY LOSS [None]
  - SHOULDER PAIN [None]
